FAERS Safety Report 12730110 (Version 1)
Quarter: 2016Q3

REPORT INFORMATION
  Report Type: Report from Study
  Country: US (occurrence: US)
  Receive Date: 20160909
  Receipt Date: 20160909
  Transmission Date: 20161109
  Serious: Yes (Hospitalization, Other)
  Sender: FDA-Public Use
  Company Number: US-B.I. PHARMACEUTICALS,INC./RIDGEFIELD-2016-BI-50175BP

PATIENT
  Sex: Female

DRUGS (2)
  1. OFEV [Suspect]
     Active Substance: NINTEDANIB
     Dosage: 300 MG
     Route: 048
     Dates: start: 20160809
  2. OFEV [Suspect]
     Active Substance: NINTEDANIB
     Indication: IDIOPATHIC PULMONARY FIBROSIS
     Dosage: 300 MG
     Route: 048
     Dates: start: 20160712

REACTIONS (7)
  - Pulmonary fibrosis [Unknown]
  - Fibrosis [Unknown]
  - Dyspnoea [Unknown]
  - Hypersensitivity [Unknown]
  - Productive cough [Unknown]
  - Diarrhoea [Recovered/Resolved with Sequelae]
  - Diarrhoea [Unknown]
